FAERS Safety Report 13284964 (Version 1)
Quarter: 2017Q1

REPORT INFORMATION
  Report Type: Spontaneous
  Country: US (occurrence: US)
  Receive Date: 20170301
  Receipt Date: 20170301
  Transmission Date: 20170428
  Serious: No
  Sender: FDA-Public Use
  Company Number: US-PFIZER INC-2017087869

PATIENT

DRUGS (1)
  1. ADVIL PM [Suspect]
     Active Substance: DIPHENHYDRAMINE CITRATE\IBUPROFEN
     Indication: HEADACHE
     Dosage: 4 DF, UNK

REACTIONS (5)
  - Dizziness [Unknown]
  - Anxiety [Unknown]
  - Heart rate increased [Unknown]
  - Overdose [Unknown]
  - Fatigue [Unknown]
